FAERS Safety Report 6877377-0 (Version None)
Quarter: 2010Q3

REPORT INFORMATION
  Report Type: 
  Country: None (occurrence: None)
  Receive Date: 20100727
  Receipt Date: 20090924
  Transmission Date: 20110219
  Serious: No
  Sender: FDA-Public Use
  Company Number: US-ABBOTT-09P-163-0599727-00

PATIENT
  Age: 55 Year
  Sex: Female

DRUGS (2)
  1. SYNTHROID [Suspect]
     Indication: THYROIDECTOMY
     Dates: start: 20090714
  2. CANASA [Concomitant]
     Indication: COLITIS ULCERATIVE
     Route: 054

REACTIONS (7)
  - CHOKING SENSATION [None]
  - COUGH [None]
  - DYSPNOEA [None]
  - ERUCTATION [None]
  - INCREASED UPPER AIRWAY SECRETION [None]
  - SENSATION OF FOREIGN BODY [None]
  - THROAT TIGHTNESS [None]
